FAERS Safety Report 5458691-2 (Version None)
Quarter: 2007Q3

REPORT INFORMATION
  Report Type: 
  Country: None (occurrence: None)
  Receive Date: 20070919
  Receipt Date: 20070423
  Transmission Date: 20080115
  Serious: No
  Sender: FDA-Public Use
  Company Number: US-ASTRAZENECA-2007UW07928

PATIENT
  Age: 54 Year
  Sex: Male

DRUGS (2)
  1. SEROQUEL [Suspect]
     Indication: BIPOLAR DISORDER
     Dosage: 50 MG QID AND 25 MG HS
     Route: 048
     Dates: start: 20050101
  2. SEROQUEL [Suspect]
     Indication: PSYCHOTIC DISORDER
     Dosage: 50 MG QID AND 25 MG HS
     Route: 048
     Dates: start: 20050101

REACTIONS (3)
  - ANXIETY [None]
  - DEPRESSED MOOD [None]
  - NIGHTMARE [None]
